FAERS Safety Report 7123600-7 (Version None)
Quarter: 2010Q4

REPORT INFORMATION
  Report Type: 
  Country: None (occurrence: None)
  Receive Date: 20101125
  Receipt Date: 20101112
  Transmission Date: 20110411
  Serious: Yes (Hospitalization)
  Sender: FDA-Public Use
  Company Number: BE-BRISTOL-MYERS SQUIBB COMPANY-15351745

PATIENT
  Age: 57 Year
  Sex: Female
  Weight: 94 kg

DRUGS (4)
  1. CETUXIMAB [Suspect]
     Indication: NON-SMALL CELL LUNG CANCER
     Dosage: FORMULATION 5 MG/ML.
     Route: 042
     Dates: start: 20101014, end: 20101014
  2. CISPLATIN [Suspect]
     Indication: NON-SMALL CELL LUNG CANCER
     Route: 042
     Dates: start: 20101014, end: 20101014
  3. CILENGITIDE [Suspect]
     Indication: NON-SMALL CELL LUNG CANCER
     Route: 042
     Dates: start: 20101014, end: 20101018
  4. GEMCITABINE [Suspect]
     Indication: NON-SMALL CELL LUNG CANCER
     Dosage: TAKEN ON DAY 1 AND 8 OF EACH 3 WEEK CYCLE.
     Route: 042
     Dates: start: 20101014, end: 20101014

REACTIONS (5)
  - DECREASED APPETITE [None]
  - DUODENAL ULCER [None]
  - GASTRITIS EROSIVE [None]
  - METASTASES TO CENTRAL NERVOUS SYSTEM [None]
  - OESOPHAGEAL ULCER [None]
